FAERS Safety Report 6134353-3 (Version None)
Quarter: 2009Q1

REPORT INFORMATION
  Report Type: 
  Country: None (occurrence: None)
  Receive Date: 20090327
  Receipt Date: 20090325
  Transmission Date: 20090719
  Serious: Yes (Death, Other)
  Sender: FDA-Public Use
  Company Number: PHHY2009FR10971

PATIENT
  Age: 59 Year
  Sex: Female

DRUGS (10)
  1. GLEEVEC [Suspect]
     Indication: CHRONIC MYELOID LEUKAEMIA
     Dosage: 400 MG DAILY
     Dates: start: 20020515
  2. CYTARABINE [Concomitant]
     Dosage: 170 MG DAILY FROM DAY TO DAY 7
  3. DAUNORUBICIN HCL [Concomitant]
     Dosage: 76.5 MG PER DAY FROM DAY 1 TO DAY 3
  4. CYCLOPHOSPHAMIDE [Concomitant]
     Dosage: 3300 MG/DAY
     Dates: start: 20071004
  5. FLUDARABINE PHOSPHATE [Concomitant]
     Dosage: 66.25 MG PER DAY
     Dates: start: 20071004
  6. TB1 [Concomitant]
     Dosage: UNK
     Dates: start: 20071009
  7. CELLCEPT [Concomitant]
  8. CYCLOSPORINE [Concomitant]
  9. CORTICOSTEROIDS [Concomitant]
     Dosage: 1 MG/KG
  10. NEUPOGEN [Concomitant]
     Dosage: 300?G/DAY
     Dates: start: 20071011

REACTIONS (4)
  - ACUTE MYELOID LEUKAEMIA [None]
  - DEMYELINATION [None]
  - LEUKOENCEPHALOPATHY [None]
  - STEM CELL TRANSPLANT [None]
